FAERS Safety Report 24673901 (Version 1)
Quarter: 2024Q4

REPORT INFORMATION
  Report Type: Report from Study
  Country: TR (occurrence: TR)
  Receive Date: 20241128
  Receipt Date: 20241128
  Transmission Date: 20250115
  Serious: Yes (Other)
  Sender: ROCHE
  Company Number: TR-ROCHE-10000140301

PATIENT

DRUGS (2)
  1. TRASTUZUMAB [Suspect]
     Active Substance: TRASTUZUMAB
     Indication: Breast cancer
     Dosage: FOR 4 WEEKS, FOLLOWED BY 4 WEEKS OF ONCE WEEKLY DOSES, AND THEN, MAINTENANCE DOSES WERE ADMINISTERED
     Route: 029
  2. METHOTREXATE [Suspect]
     Active Substance: METHOTREXATE
     Indication: Breast cancer
     Dosage: FOR 4 WEEKS
     Route: 029

REACTIONS (5)
  - Neutropenia [Unknown]
  - Leukoencephalopathy [Unknown]
  - Headache [Unknown]
  - Mucosal inflammation [Unknown]
  - Vomiting [Unknown]
